FAERS Safety Report 20956081 (Version 1)
Quarter: 2022Q2

REPORT INFORMATION
  Report Type: Spontaneous
  Country: US (occurrence: US)
  Receive Date: 20220614
  Receipt Date: 20220614
  Transmission Date: 20220721
  Serious: No
  Sender: FDA-Public Use
  Company Number: US-009507513-2205USA005317

PATIENT
  Age: 71 Year
  Sex: Male

DRUGS (1)
  1. STROMECTOL [Suspect]
     Active Substance: IVERMECTIN
     Indication: Bed bug infestation
     Dosage: 200 MILLIGRAM, DAILY
     Route: 048

REACTIONS (1)
  - Off label use [Unknown]
